FAERS Safety Report 4766353-X (Version None)
Quarter: 2005Q3

REPORT INFORMATION
  Report Type: 
  Country: None (occurrence: None)
  Receive Date: 20050909
  Receipt Date: 20050831
  Transmission Date: 20060218
  Serious: Yes (Other)
  Sender: FDA-Public Use
  Company Number: 2005-01526

PATIENT
  Age: 53 Year
  Sex: Female

DRUGS (4)
  1. VELCADE [Suspect]
     Indication: MULTIPLE MYELOMA
     Dosage: SEE IMAGE
     Route: 042
     Dates: start: 20050128, end: 20050509
  2. VELCADE [Suspect]
     Indication: MULTIPLE MYELOMA
     Dosage: SEE IMAGE
     Route: 042
     Dates: start: 20050701
  3. VELCADE [Suspect]
  4. VELCADE [Suspect]

REACTIONS (3)
  - DIZZINESS [None]
  - OPTIC NEURITIS [None]
  - VISION BLURRED [None]
